FAERS Safety Report 24766277 (Version 1)
Quarter: 2024Q4

REPORT INFORMATION
  Report Type: Spontaneous
  Country: US (occurrence: None)
  Receive Date: 20241220
  Receipt Date: 20241220
  Transmission Date: 20250114
  Serious: Yes (Other)
  Sender: Public
  Company Number: None

PATIENT
  Age: 53 Year
  Sex: Female
  Weight: 75 kg

DRUGS (1)
  1. TEPEZZA [Suspect]
     Active Substance: TEPROTUMUMAB-TRBW
     Indication: Endocrine ophthalmopathy
     Dosage: 1500 MG  EVERY 3 WEEKS INTRAVENOUS ?
     Route: 042
     Dates: start: 20240527, end: 20241118

REACTIONS (4)
  - Tinnitus [None]
  - Hypoacusis [None]
  - Tinnitus [None]
  - Deafness [None]

NARRATIVE: CASE EVENT DATE: 20241203
